FAERS Safety Report 8433280-6 (Version None)
Quarter: 2012Q2

REPORT INFORMATION
  Report Type: 
  Country: None (occurrence: None)
  Receive Date: 20120613
  Receipt Date: 20120612
  Transmission Date: 20120825
  Serious: Yes (Death)
  Sender: FDA-Public Use
  Company Number: ES-PFIZER INC-2012141816

PATIENT
  Age: 66 Year
  Sex: Female

DRUGS (3)
  1. ZIPRASIDONE HYDROCHLORIDE [Suspect]
     Indication: PSYCHOTIC DISORDER
     Dosage: 20 MG, DAILY
     Route: 048
     Dates: start: 20120510, end: 20120520
  2. FABROVEN [Concomitant]
     Indication: VARICOSE VEIN
     Dosage: UNK
     Route: 048
     Dates: start: 20120417
  3. LORAZEPAM [Concomitant]
     Dosage: UNK
     Route: 048
     Dates: start: 20111103

REACTIONS (1)
  - SUDDEN DEATH [None]
